FAERS Safety Report 10059296 (Version 1)
Quarter: 2014Q2

REPORT INFORMATION
  Report Type: Spontaneous
  Country: US (occurrence: US)
  Receive Date: 20140404
  Receipt Date: 20140404
  Transmission Date: 20141212
  Serious: Yes (Other)
  Sender: FDA-Public Use
  Company Number: US-JNJFOC-20140319285

PATIENT
  Age: 4 Decade
  Sex: Female

DRUGS (4)
  1. REMICADE [Suspect]
     Indication: SARCOIDOSIS
     Route: 042
  2. METHOTREXATE [Concomitant]
     Indication: SARCOIDOSIS
     Route: 065
  3. STEROIDS NOS [Concomitant]
     Indication: SARCOIDOSIS
     Dosage: HIGH DOSE
     Route: 065
  4. PLAQUENIL [Concomitant]
     Indication: SARCOIDOSIS
     Route: 065

REACTIONS (2)
  - Ejection fraction decreased [Not Recovered/Not Resolved]
  - Off label use [Unknown]
